FAERS Safety Report 6196823-1 (Version None)
Quarter: 2009Q2

REPORT INFORMATION
  Report Type: 
  Country: None (occurrence: None)
  Receive Date: 20090520
  Receipt Date: 20090512
  Transmission Date: 20091009
  Serious: Yes (Hospitalization)
  Sender: FDA-Public Use
  Company Number: NG-WATSON-2009-03373

PATIENT
  Age: 9 Year
  Sex: Female

DRUGS (2)
  1. CHLOROQUINE (WATSON LABORATORIES) [Suspect]
     Indication: MALARIA
     Dosage: UNK
  2. FANSIDAR                           /00423901/ [Suspect]
     Indication: MALARIA
     Dosage: UNK

REACTIONS (2)
  - STEVENS-JOHNSON SYNDROME [None]
  - TOXIC EPIDERMAL NECROLYSIS [None]
